FAERS Safety Report 7995557-8 (Version None)
Quarter: 2011Q4

REPORT INFORMATION
  Report Type: 
  Country: None (occurrence: None)
  Receive Date: 20111220
  Receipt Date: 20111216
  Transmission Date: 20120403
  Serious: Yes (Hospitalization)
  Sender: FDA-Public Use
  Company Number: DE-ABBOTT-11P-062-0884160-00

PATIENT
  Sex: Female

DRUGS (1)
  1. HUMIRA [Suspect]
     Indication: PSORIASIS
     Route: 058
     Dates: start: 20101201, end: 20111101

REACTIONS (3)
  - ARTHROPATHY [None]
  - ANTINUCLEAR ANTIBODY INCREASED [None]
  - SYSTEMIC LUPUS ERYTHEMATOSUS [None]
